FAERS Safety Report 7241333-3 (Version None)
Quarter: 2011Q1

REPORT INFORMATION
  Report Type: 
  Country: None (occurrence: None)
  Receive Date: 20110124
  Receipt Date: 20110111
  Transmission Date: 20110831
  Serious: Yes (Hospitalization, Other)
  Sender: FDA-Public Use
  Company Number: BR-SANOFI-AVENTIS-2011SA002285

PATIENT
  Sex: Female
  Weight: 60 kg

DRUGS (6)
  1. LANTUS [Suspect]
     Indication: TYPE 2 DIABETES MELLITUS
     Route: 058
     Dates: start: 20030101
  2. OMEGA-3 POLYUNSATURATED FATTY ACID [Concomitant]
     Indication: VITAMIN SUPPLEMENTATION
     Route: 048
  3. SINVASTATINA WINTHROP [Concomitant]
     Route: 048
     Dates: start: 20000101
  4. LEXOTAN [Concomitant]
     Indication: SEDATION
     Route: 048
     Dates: start: 20101201
  5. ASCORBIC ACID [Concomitant]
     Indication: VITAMIN SUPPLEMENTATION
     Route: 048
  6. CARDIZEM [Concomitant]
     Route: 048

REACTIONS (6)
  - DIPLEGIA [None]
  - MACULAR DEGENERATION [None]
  - ABASIA [None]
  - EYE IRRITATION [None]
  - GUILLAIN-BARRE SYNDROME [None]
  - VISUAL IMPAIRMENT [None]
